FAERS Safety Report 21615090 (Version 1)
Quarter: 2022Q4

REPORT INFORMATION
  Report Type: Spontaneous
  Country: CN (occurrence: CN)
  Receive Date: 20221118
  Receipt Date: 20221118
  Transmission Date: 20230112
  Serious: Yes (Other)
  Sender: FDA-Public Use
  Company Number: CN-PFIZER INC-PV202200105218

PATIENT
  Age: 51 Year
  Sex: Male

DRUGS (3)
  1. CEFOPERAZONE SODIUM [Suspect]
     Active Substance: CEFOPERAZONE SODIUM
     Indication: Bile duct stone
     Dosage: 2 G, 3X/DAY
     Route: 041
     Dates: start: 20221026, end: 20221028
  2. CEFOPERAZONE SODIUM [Suspect]
     Active Substance: CEFOPERAZONE SODIUM
     Indication: Cholangitis infective
  3. SODIUM CHLORIDE [Concomitant]
     Active Substance: SODIUM CHLORIDE
     Indication: Vehicle solution use
     Dosage: 100 ML, 3X/DAY
     Route: 041
     Dates: start: 20221026, end: 20221028

REACTIONS (3)
  - Hypoaesthesia [Recovered/Resolved]
  - Lip erythema [Recovered/Resolved]
  - Lip swelling [Recovered/Resolved]

NARRATIVE: CASE EVENT DATE: 20221028
